FAERS Safety Report 5162095-X (Version None)
Quarter: 2006Q4

REPORT INFORMATION
  Report Type: 
  Country: None (occurrence: None)
  Receive Date: 20061121
  Receipt Date: 20061009
  Transmission Date: 20070319
  Serious: Yes (Other)
  Sender: FDA-Public Use
  Company Number: 2006BH013759

PATIENT
  Age: 76 Year
  Sex: Male
  Weight: 66 kg

DRUGS (8)
  1. EXTRANEAL [Suspect]
     Indication: PERITONEAL DIALYSIS
     Dosage: 2000 ML; EVERY DAY; IP
     Route: 033
     Dates: start: 20051215, end: 20060922
  2. KETOSTERIL [Concomitant]
  3. EPOETIN BETA [Concomitant]
  4. FOLBIOL [Concomitant]
  5. PHOS-EX [Concomitant]
  6. ROCALTROL [Concomitant]
  7. LUSTRAL [Concomitant]
  8. FERRO ^SANOL^ [Concomitant]

REACTIONS (8)
  - ABDOMINAL PAIN UPPER [None]
  - BACTERIAL CULTURE POSITIVE [None]
  - DIARRHOEA [None]
  - NAUSEA [None]
  - PERITONEAL FLUID ANALYSIS ABNORMAL [None]
  - PYREXIA [None]
  - STREPTOCOCCAL INFECTION [None]
  - VOMITING [None]
